FAERS Safety Report 6453128-9 (Version None)
Quarter: 2009Q4

REPORT INFORMATION
  Report Type: 
  Country: None (occurrence: None)
  Receive Date: 20091123
  Receipt Date: 20091123
  Transmission Date: 20100525
  Serious: Yes (Hospitalization)
  Sender: FDA-Public Use
  Company Number: None

PATIENT
  Age: 30 Year
  Sex: Male
  Weight: 108.8 kg

DRUGS (2)
  1. BORTEZOMIB [Suspect]
     Dosage: 1.3 MG/M2 DAY 1, 4, 8, 11 IV
     Route: 042
  2. TIPIFARNIB 300 MG BID [Suspect]
     Dosage: 300 MG/BID 10-13-2009 TO 10-20-2009

REACTIONS (1)
  - WOUND DEHISCENCE [None]
